FAERS Safety Report 8478046-6 (Version None)
Quarter: 2012Q2

REPORT INFORMATION
  Report Type: 
  Country: None (occurrence: None)
  Receive Date: 20120629
  Receipt Date: 20120620
  Transmission Date: 20120825
  Serious: Yes (Hospitalization)
  Sender: FDA-Public Use
  Company Number: US-GENZYME-MOZO-1000719

PATIENT
  Age: 56 Year
  Sex: Male

DRUGS (5)
  1. MOZOBIL [Suspect]
     Indication: ACUTE MYELOID LEUKAEMIA
     Dosage: 750 MCG/KG, QD, DAYS 3-8
     Route: 042
     Dates: start: 20120610, end: 20120615
  2. MITOXANTRONE [Concomitant]
     Indication: ACUTE MYELOID LEUKAEMIA
     Dosage: 8 MG/M2, QD, DAYS 4-8
     Route: 042
  3. CYTARABINE [Concomitant]
     Indication: ACUTE MYELOID LEUKAEMIA
     Dosage: 1000 MG/M2, QD, DAYS 4-8
     Route: 042
  4. GRANULOCYTE COLONY STIMULATING FACTOR [Concomitant]
     Indication: ACUTE MYELOID LEUKAEMIA
     Dosage: UNK MCG/KG, QD, DAYS 1-8
     Route: 058
  5. ETOPOSIDE [Concomitant]
     Indication: ACUTE MYELOID LEUKAEMIA
     Dosage: 100 MG/M2, QD, DAYS 4-8
     Route: 042

REACTIONS (2)
  - HYPOTENSION [None]
  - SEPSIS [None]
